FAERS Safety Report 5229730-9 (Version None)
Quarter: 2007Q1

REPORT INFORMATION
  Report Type: 
  Country: None (occurrence: None)
  Receive Date: 20070206
  Receipt Date: 20070124
  Transmission Date: 20070707
  Serious: Yes (Death, Other)
  Sender: FDA-Public Use
  Company Number: US-PFIZER INC-2007004118

PATIENT
  Sex: Female

DRUGS (1)
  1. NEURONTIN [Suspect]
     Indication: DIABETIC NEUROPATHY
     Route: 048
     Dates: start: 20020913, end: 20040614

REACTIONS (9)
  - CHRONIC OBSTRUCTIVE PULMONARY DISEASE [None]
  - DYSPNOEA [None]
  - HOSTILITY [None]
  - MOOD ALTERED [None]
  - NAUSEA [None]
  - OEDEMA PERIPHERAL [None]
  - RESPIRATORY FAILURE [None]
  - SUICIDAL IDEATION [None]
  - TREMOR [None]
